FAERS Safety Report 8167405-7 (Version None)
Quarter: 2012Q1

REPORT INFORMATION
  Report Type: 
  Country: None (occurrence: None)
  Receive Date: 20120227
  Receipt Date: 20120220
  Transmission Date: 20120608
  Serious: Yes (Death, Hospitalization, Other)
  Sender: FDA-Public Use
  Company Number: US-ELI_LILLY_AND_COMPANY-US201202005804

PATIENT
  Sex: Female

DRUGS (11)
  1. MEGACE ES [Concomitant]
     Indication: APPETITE DISORDER
  2. ALIMTA [Suspect]
     Indication: LUNG NEOPLASM MALIGNANT
     Dosage: 900 MG, UNK
     Dates: start: 20101230, end: 20110210
  3. PERCOCET [Concomitant]
     Dosage: 7.5 / 325 DF
  4. DURAGESIC-100 [Concomitant]
  5. NEURONTIN [Concomitant]
  6. ALOXI [Concomitant]
  7. ATIVAN [Concomitant]
  8. MS CONTIN [Concomitant]
  9. TOPROL-XL [Concomitant]
  10. DECADRON [Concomitant]
  11. AVASTIN [Concomitant]

REACTIONS (4)
  - DEATH [None]
  - NEOPLASM MALIGNANT [None]
  - HOSPICE CARE [None]
  - PAIN [None]
